FAERS Safety Report 8357424-X (Version None)
Quarter: 2012Q2

REPORT INFORMATION
  Report Type: 
  Country: None (occurrence: None)
  Receive Date: 20120511
  Receipt Date: 20120504
  Transmission Date: 20120825
  Serious: Yes (Death, Other)
  Sender: FDA-Public Use
  Company Number: 2012SP017491

PATIENT
  Age: 56 Year
  Sex: Female
  Weight: 80 kg

DRUGS (7)
  1. SYNTHROID [Concomitant]
  2. AVASTIN [Suspect]
     Indication: GLIOBLASTOMA MULTIFORME
     Dosage: 805 MG;QOW;IV
     Route: 042
     Dates: start: 20070817, end: 20070831
  3. ASPIRIN [Concomitant]
  4. PROTONIX [Concomitant]
  5. KEPPRA [Concomitant]
  6. DECADRON [Concomitant]
  7. TEMODAR [Suspect]
     Indication: GLIOBLASTOMA MULTIFORME
     Dosage: 90 MG;QD;PO
     Route: 048
     Dates: start: 20070817, end: 20070910

REACTIONS (9)
  - FALL [None]
  - CONVULSION [None]
  - HYPOTENSION [None]
  - TACHYCARDIA [None]
  - ASTHENIA [None]
  - MENTAL STATUS CHANGES [None]
  - DISEASE PROGRESSION [None]
  - ABASIA [None]
  - PNEUMONIA FUNGAL [None]
